FAERS Safety Report 8374020-9 (Version None)
Quarter: 2012Q2

REPORT INFORMATION
  Report Type: 
  Country: None (occurrence: None)
  Receive Date: 20120517
  Receipt Date: 20120517
  Transmission Date: 20120825
  Serious: Yes (Life-Threatening, Hospitalization)
  Sender: FDA-Public Use
  Company Number: None

PATIENT
  Age: 76 Year
  Sex: Female
  Weight: 117.1 kg

DRUGS (1)
  1. AZITHROMYCIN [Suspect]
     Indication: UPPER RESPIRATORY TRACT INFECTION
     Dosage: 250MG PO  END OF APRIL-1ST OF MAY
     Route: 048

REACTIONS (7)
  - TACHYCARDIA [None]
  - COAGULOPATHY [None]
  - SEPSIS [None]
  - RENAL FAILURE ACUTE [None]
  - JAUNDICE CHOLESTATIC [None]
  - ACUTE HEPATIC FAILURE [None]
  - ATRIAL FIBRILLATION [None]
